FAERS Safety Report 5226101-6 (Version None)
Quarter: 2007Q1

REPORT INFORMATION
  Report Type: 
  Country: None (occurrence: None)
  Receive Date: 20070129
  Receipt Date: 20070116
  Transmission Date: 20070707
  Serious: No
  Sender: FDA-Public Use
  Company Number: 2007-153075-NL

PATIENT
  Age: 60 Year
  Sex: Female

DRUGS (2)
  1. MIRTAZAPINE [Suspect]
     Indication: DEPRESSION
     Dosage: 15 MG ORAL
     Route: 048
     Dates: start: 20060921, end: 20061027
  2. VENLAFAXINE HCL [Concomitant]

REACTIONS (1)
  - EXCESSIVE MASTURBATION [None]
